FAERS Safety Report 9220326 (Version 5)
Quarter: 2013Q4

REPORT INFORMATION
  Report Type: Report from Study
  Country: US (occurrence: US)
  Receive Date: 20130409
  Receipt Date: 20131125
  Transmission Date: 20140711
  Serious: Yes (Hospitalization)
  Sender: FDA-Public Use
  Company Number: US-UCBSA-081819

PATIENT
  Age: 15 Year
  Sex: Female
  Weight: 54.2 kg

DRUGS (18)
  1. LACOSAMIDE [Suspect]
     Indication: EPILEPSY
     Route: 048
     Dates: start: 20120717
  2. LACOSAMIDE [Suspect]
     Indication: EPILEPSY
     Route: 048
  3. TRILEPTAL [Concomitant]
     Indication: EPILEPSY
     Route: 048
  4. TRILEPTAL [Concomitant]
     Indication: EPILEPSY
     Route: 048
  5. KEPPRA [Concomitant]
     Indication: EPILEPSY
     Route: 048
  6. KEPPRA [Concomitant]
     Indication: EPILEPSY
     Dosage: 100MG/ML
     Route: 048
  7. CLONAZEPAM [Concomitant]
     Indication: SEIZURE CLUSTER
     Route: 048
  8. AMITRIPTYLINE [Concomitant]
     Indication: HEADACHE
     Dosage: QHS
     Route: 048
  9. NEURONTIN [Concomitant]
     Indication: HEADACHE
     Route: 048
  10. NEURONTIN [Concomitant]
     Indication: HEADACHE
     Route: 048
  11. FIORICET [Concomitant]
     Indication: HEADACHE
     Dosage: 1 TAB PRN Q4H
     Route: 048
  12. PRILOSEC [Concomitant]
  13. CARAFATE [Concomitant]
  14. MIRALAX [Concomitant]
     Indication: CONSTIPATION
  15. NADOLOL [Concomitant]
     Indication: HYPERTENSION
  16. ENALAPRIL [Concomitant]
     Indication: HYPERTENSION
     Route: 048
  17. DIASTAT [Concomitant]
     Indication: CONVULSION
  18. ALBUTEROL [Concomitant]
     Dosage: 2 PUFFS INHALATION, 90MCG

REACTIONS (1)
  - Pancreatitis [Recovered/Resolved]
